FAERS Safety Report 17592294 (Version 1)
Quarter: 2020Q1

REPORT INFORMATION
  Report Type: Spontaneous
  Country: US (occurrence: US)
  Receive Date: 20200327
  Receipt Date: 20200327
  Transmission Date: 20200409
  Serious: No
  Sender: FDA-Public Use
  Company Number: US-GLAXOSMITHKLINE-US2020053966

PATIENT
  Age: 84 Year
  Sex: Female

DRUGS (1)
  1. FLONASE SENSIMIST ALLERGY RELIEF [Suspect]
     Active Substance: FLUTICASONE FUROATE
     Indication: HYPERSENSITIVITY
     Dosage: UNK
     Dates: start: 20200320, end: 20200325

REACTIONS (5)
  - Vomiting [Unknown]
  - Nausea [Recovering/Resolving]
  - Wrong technique in product usage process [Unknown]
  - Dizziness [Unknown]
  - Product complaint [Unknown]

NARRATIVE: CASE EVENT DATE: 20200325
